FAERS Safety Report 17095294 (Version 1)
Quarter: 2019Q4

REPORT INFORMATION
  Report Type: Spontaneous
  Country: US (occurrence: US)
  Receive Date: 20191101
  Receipt Date: 20191101
  Transmission Date: 20200122
  Serious: Yes (Hospitalization)
  Sender: FDA-Public Use
  Company Number: None

PATIENT
  Age: 72 Year
  Sex: Female
  Weight: 54 kg

DRUGS (1)
  1. CISPLATIN. [Suspect]
     Active Substance: CISPLATIN
     Dates: end: 20190221

REACTIONS (7)
  - Pyrexia [None]
  - Streptococcus test positive [None]
  - Blood sodium decreased [None]
  - Asthenia [None]
  - Hypophagia [None]
  - Pseudomonas test positive [None]
  - Sputum culture positive [None]

NARRATIVE: CASE EVENT DATE: 20190315
